FAERS Safety Report 9472563 (Version 1)
Quarter: 2013Q3

REPORT INFORMATION
  Report Type: Spontaneous
  Country: US (occurrence: US)
  Receive Date: 20130823
  Receipt Date: 20130823
  Transmission Date: 20140515
  Serious: Yes (Hospitalization, Other)
  Sender: FDA-Public Use
  Company Number: US-BAYER-2013-093257

PATIENT
  Age: 40 Year
  Sex: Female

DRUGS (3)
  1. MIRENA [Suspect]
     Indication: CONTRACEPTION
     Dosage: UNK
     Route: 015
     Dates: start: 20130719
  2. MIRENA [Suspect]
     Indication: DYSMENORRHOEA
  3. MIRENA [Suspect]
     Indication: DYSFUNCTIONAL UTERINE BLEEDING

REACTIONS (6)
  - Dizziness [None]
  - Ear infection [None]
  - Vertigo [None]
  - Hyperkalaemia [None]
  - Speech disorder [None]
  - Syncope [None]
